FAERS Safety Report 23769805 (Version 1)
Quarter: 2024Q2

REPORT INFORMATION
  Report Type: Spontaneous
  Country: FR (occurrence: FR)
  Receive Date: 20240422
  Receipt Date: 20240422
  Transmission Date: 20240716
  Serious: Yes (Hospitalization, Disabling)
  Sender: FDA-Public Use
  Company Number: FR-PFIZER INC-2015040815

PATIENT
  Age: 64 Year
  Sex: Female
  Weight: 64 kg

DRUGS (8)
  1. METHOTREXATE SODIUM [Suspect]
     Active Substance: METHOTREXATE SODIUM
     Indication: Rheumatoid arthritis
     Dosage: 15 MG, WEEKLY
     Dates: start: 201311, end: 20141117
  2. AVOCADO OIL\SOYBEAN OIL [Suspect]
     Active Substance: AVOCADO OIL\SOYBEAN OIL
     Dosage: 600 MG, DAILY
     Route: 065
  3. LEVOTHYROXINE [Concomitant]
     Active Substance: LEVOTHYROXINE\LEVOTHYROXINE SODIUM
     Dosage: 1 DF, 1X/DAY
     Route: 065
  4. VOLTARENE [Concomitant]
     Dosage: 1 DF, AS NEEDED
     Route: 065
  5. OMEPRAZOLE [Concomitant]
     Active Substance: OMEPRAZOLE
     Dosage: 20 MG, DAILY
     Route: 065
  6. FOLIC ACID [Concomitant]
     Active Substance: FOLIC ACID
     Dosage: 2 DF, WEEKLY
     Route: 065
  7. CHOLECALCIFEROL [Concomitant]
     Active Substance: CHOLECALCIFEROL
     Dosage: 1 DF, MONTHLY
     Route: 065
  8. AUGMENTIN [Concomitant]
     Active Substance: AMOXICILLIN\CLAVULANATE POTASSIUM
     Indication: Pharyngitis
     Dosage: UNK
     Route: 065
     Dates: start: 20141114

REACTIONS (6)
  - Herpes zoster infection neurological [Recovered/Resolved with Sequelae]
  - Meningitis aseptic [Unknown]
  - Bell^s palsy [Not Recovered/Not Resolved]
  - Creatinine renal clearance decreased [Unknown]
  - Paraesthesia [Not Recovered/Not Resolved]
  - Pneumonia aspiration [Not Recovered/Not Resolved]

NARRATIVE: CASE EVENT DATE: 20141116
